FAERS Safety Report 8947436 (Version 1)
Quarter: 2012Q4

REPORT INFORMATION
  Report Type: 
  Country: AU (occurrence: AU)
  Receive Date: 20121205
  Receipt Date: 20121205
  Transmission Date: 20130627
  Serious: Yes (Other)
  Sender: FDA-Public Use
  Company Number: AU-ASTRAZENECA-2012SE89369

PATIENT
  Age: 45 Year
  Sex: Female

DRUGS (8)
  1. QUETIAPINE [Suspect]
     Indication: DEPRESSION
     Route: 048
  2. SODIUM VALPROATE [Interacting]
     Route: 048
  3. SODIUM VALPROATE [Interacting]
     Dosage: REDUCED DOSE
     Route: 048
  4. VENLAFAXINE [Concomitant]
     Route: 048
  5. ROSUVASTATIN [Concomitant]
     Route: 048
  6. LITHIUM [Concomitant]
  7. DIAZEPAM [Concomitant]
  8. THYROXINE [Concomitant]

REACTIONS (2)
  - Drug interaction [Recovered/Resolved]
  - Oedema peripheral [Recovered/Resolved]
